FAERS Safety Report 4412864-6 (Version None)
Quarter: 2004Q3

REPORT INFORMATION
  Report Type: 
  Country: None (occurrence: None)
  Receive Date: 20040727
  Receipt Date: 20040714
  Transmission Date: 20050211
  Serious: Yes (Other)
  Sender: FDA-Public Use
  Company Number: US-2004-028760

PATIENT
  Sex: Female

DRUGS (3)
  1. YASMIN [Suspect]
     Indication: HORMONE REPLACEMENT THERAPY
     Dosage: 1 TAB(S), 1X/DAY, ORAL
     Route: 048
     Dates: start: 20030801
  2. VITAMIN E [Concomitant]
  3. CITRACAL (CALCIUM CITRATE) [Concomitant]

REACTIONS (3)
  - FIBULA FRACTURE [None]
  - PATHOLOGICAL FRACTURE [None]
  - STRESS FRACTURE [None]
